FAERS Safety Report 9023824 (Version 1)
Quarter: 2013Q1

REPORT INFORMATION
  Report Type: Report from Study
  Country: US (occurrence: US)
  Receive Date: 20130121
  Receipt Date: 20130121
  Transmission Date: 20140127
  Serious: Yes (Hospitalization)
  Sender: FDA-Public Use
  Company Number: US-ABBOTT-13P-163-1036186-00

PATIENT
  Sex: Female
  Weight: 118.04 kg

DRUGS (5)
  1. HUMIRA [Suspect]
     Indication: PSORIASIS
     Dates: start: 2010, end: 20110606
  2. POTASSIUM [Suspect]
     Indication: PRODUCT USED FOR UNKNOWN INDICATION
  3. DOVENEX [Concomitant]
     Indication: PSORIASIS
  4. CLOBETASOL [Concomitant]
     Indication: PSORIASIS
  5. PREDNISONE [Concomitant]
     Indication: PRODUCT USED FOR UNKNOWN INDICATION

REACTIONS (6)
  - Pulmonary thrombosis [Recovered/Resolved]
  - Small cell lung cancer [Recovered/Resolved]
  - Cough [Recovered/Resolved]
  - Burn oesophageal [Recovered/Resolved]
  - Dysphagia [Recovered/Resolved]
  - Foreign body [Recovered/Resolved]
